FAERS Safety Report 15358489 (Version 1)
Quarter: 2018Q3

REPORT INFORMATION
  Report Type: Spontaneous
  Country: US (occurrence: US)
  Receive Date: 20180906
  Receipt Date: 20180906
  Transmission Date: 20181010
  Serious: No
  Sender: FDA-Public Use
  Company Number: US-PERRIGO-17US026626

PATIENT
  Age: 45 Year
  Sex: Male
  Weight: 84.35 kg

DRUGS (2)
  1. ALLEGRA [Concomitant]
     Active Substance: FEXOFENADINE HYDROCHLORIDE
     Indication: SEASONAL ALLERGY
     Dosage: UNK, PRN
     Route: 048
     Dates: start: 201709
  2. TRIAMCINOLONE ACETONIDE. [Suspect]
     Active Substance: TRIAMCINOLONE ACETONIDE
     Indication: SEASONAL ALLERGY
     Dosage: 1.5 SPRAYS IN EACH NOSTRIL, QAM
     Route: 045
     Dates: start: 20170905

REACTIONS (2)
  - Incorrect dose administered [Unknown]
  - Parosmia [Unknown]

NARRATIVE: CASE EVENT DATE: 20170905
